FAERS Safety Report 18318370 (Version 1)
Quarter: 2020Q3

REPORT INFORMATION
  Report Type: Other
  Country: GB (occurrence: CN)
  Receive Date: 20200928
  Receipt Date: 20200928
  Transmission Date: 20201103
  Serious: Yes (Hospitalization, Other)
  Sender: FDA-Public Use
  Company Number: CN-ASTELLAS-2020US033286

PATIENT
  Age: 52 Year
  Sex: Female
  Weight: 58 kg

DRUGS (7)
  1. PACLITAXEL. [Suspect]
     Active Substance: PACLITAXEL
     Indication: SARCOMATOID CARCINOMA
     Dosage: 0.2 G, ONCE DAILY
     Route: 041
     Dates: start: 20200901
  2. SODIUM CHLORIDE. [Concomitant]
     Active Substance: SODIUM CHLORIDE
     Indication: FUNGAL INFECTION
     Dosage: UNK UNK, UNKNOWN FREQ.
     Route: 065
  3. IMIPENEM [Concomitant]
     Active Substance: IMIPENEM
     Indication: INFECTION PROPHYLAXIS
     Route: 065
  4. FLUCONAZOLE. [Concomitant]
     Active Substance: FLUCONAZOLE
     Indication: FUNGAL INFECTION
     Dosage: UNK UNK, UNKNOWN FREQ.
     Route: 065
  5. TARCEVA [Suspect]
     Active Substance: ERLOTINIB HYDROCHLORIDE
     Indication: SARCOMATOID CARCINOMA
     Route: 048
     Dates: start: 20200827, end: 20200907
  6. CARBOPLATIN. [Suspect]
     Active Substance: CARBOPLATIN
     Indication: SARCOMATOID CARCINOMA
     Route: 041
     Dates: start: 20200902
  7. CILASTATIN [Concomitant]
     Active Substance: CILASTATIN
     Indication: INFECTION PROPHYLAXIS
     Route: 065

REACTIONS (4)
  - Intentional product use issue [Unknown]
  - Myelosuppression [Not Recovered/Not Resolved]
  - Off label use [Unknown]
  - Pyrexia [Unknown]

NARRATIVE: CASE EVENT DATE: 20200904
